FAERS Safety Report 24777969 (Version 1)
Quarter: 2024Q4

REPORT INFORMATION
  Report Type: Spontaneous
  Country: US (occurrence: US)
  Receive Date: 20241226
  Receipt Date: 20241226
  Transmission Date: 20250114
  Serious: Yes (Other)
  Sender: MYLAN
  Company Number: US-MYLANLABS-2024M1113766

PATIENT
  Age: 19 Year
  Sex: Female

DRUGS (3)
  1. MYCOPHENOLATE MOFETIL [Suspect]
     Active Substance: MYCOPHENOLATE MOFETIL
     Indication: Dermatomyositis
     Dosage: UNK
     Route: 065
  2. METHYLPREDNISOLONE [Concomitant]
     Active Substance: METHYLPREDNISOLONE
     Indication: Dermatomyositis
     Dosage: UNK, PULSE DOSE
     Route: 042
  3. Immunoglobulin [Concomitant]
     Indication: Dermatomyositis
     Dosage: UNK
     Route: 042

REACTIONS (3)
  - Condition aggravated [Recovering/Resolving]
  - Hypertransaminasaemia [Recovering/Resolving]
  - Off label use [Unknown]
